FAERS Safety Report 13137146 (Version 1)
Quarter: 2017Q1

REPORT INFORMATION
  Report Type: Spontaneous
  Country: US (occurrence: US)
  Receive Date: 20170123
  Receipt Date: 20170123
  Transmission Date: 20170428
  Serious: No
  Sender: FDA-Public Use
  Company Number: US-TEVA-670203USA

PATIENT
  Sex: Male

DRUGS (1)
  1. ADRUCIL [Suspect]
     Active Substance: FLUOROURACIL
     Indication: COLON CANCER
     Dosage: 800 MG BOLUS, CONTINUOUS INFUSION OF 4800 MG OVER 46 HOURS
     Dates: start: 20151222, end: 20160524

REACTIONS (1)
  - Chest pain [Unknown]
